FAERS Safety Report 14099638 (Version 2)
Quarter: 2017Q4

REPORT INFORMATION
  Report Type: Spontaneous
  Country: US (occurrence: US)
  Receive Date: 20171017
  Receipt Date: 20171031
  Transmission Date: 20180321
  Serious: Yes (Other)
  Sender: FDA-Public Use
  Company Number: US-ELI_LILLY_AND_COMPANY-US201710002305

PATIENT
  Age: 35 Year
  Sex: Male

DRUGS (2)
  1. ZYPREXA [Suspect]
     Active Substance: OLANZAPINE
     Indication: BIPOLAR DISORDER
     Dosage: 20 MG, UNKNOWN
     Route: 048
     Dates: start: 20150818
  2. STRATTERA [Suspect]
     Active Substance: ATOMOXETINE HYDROCHLORIDE
     Indication: ATTENTION DEFICIT/HYPERACTIVITY DISORDER
     Dosage: 40 MG, DAILY
     Route: 048

REACTIONS (12)
  - Hypotension [Unknown]
  - Attention deficit/hyperactivity disorder [Unknown]
  - Carpal tunnel syndrome [Unknown]
  - Headache [Unknown]
  - Nausea [Unknown]
  - Lethargy [Unknown]
  - Therapeutic response decreased [Unknown]
  - Visual impairment [Unknown]
  - Loss of consciousness [Unknown]
  - Unresponsive to stimuli [Unknown]
  - Hypertension [Unknown]
  - Dizziness [Unknown]

NARRATIVE: CASE EVENT DATE: 20150818
